FAERS Safety Report 13710822 (Version 1)
Quarter: 2017Q3

REPORT INFORMATION
  Report Type: Spontaneous
  Country: US (occurrence: US)
  Receive Date: 20170701
  Receipt Date: 20170701
  Transmission Date: 20171127
  Serious: Yes (Hospitalization)
  Sender: FDA-Public Use
  Company Number: None

PATIENT
  Age: 77 Year
  Sex: Male
  Weight: 99.8 kg

DRUGS (2)
  1. CASODEX [Suspect]
     Active Substance: BICALUTAMIDE
     Dates: end: 20120510
  2. LEUPROLIDE ACETATE. [Concomitant]
     Active Substance: LEUPROLIDE ACETATE
     Dates: end: 20120216

REACTIONS (1)
  - Haematuria [None]

NARRATIVE: CASE EVENT DATE: 20170527
